FAERS Safety Report 14337697 (Version 18)
Quarter: 2019Q2

REPORT INFORMATION
  Report Type: Spontaneous
  Country: CA (occurrence: CA)
  Receive Date: 20171229
  Receipt Date: 20190425
  Transmission Date: 20190711
  Serious: Yes (Death, Life-Threatening, Hospitalization, Disabling, Other)
  Sender: FDA-Public Use
  Company Number: CA-PFIZER INC-2017553277

PATIENT
  Age: 61 Year
  Sex: Female
  Weight: 67 kg

DRUGS (55)
  1. DILTIAZEM CD [Suspect]
     Active Substance: DILTIAZEM
     Dosage: 180 MG, UNK
     Route: 048
     Dates: start: 2017, end: 2017
  2. HYDRALAZINE [Suspect]
     Active Substance: HYDRALAZINE HYDROCHLORIDE
     Dosage: 10 MG, 4X/DAY (1 EVERY 6 HOUR(S))
     Route: 042
  3. METOPROLOL. [Suspect]
     Active Substance: METOPROLOL
     Dosage: 5 MG, 4X/DAY (EVERY 6 HOURS)
     Route: 042
     Dates: start: 2017
  4. PROCYTOX [Suspect]
     Active Substance: CYCLOPHOSPHAMIDE
     Indication: BREAST CANCER
     Dosage: 1060 MG, Q2WEEKS (ONCE EVERY 14 DAYS) (1 EVERY 2 WEEK(S))
     Route: 042
  5. FILGRASTIM [Concomitant]
     Active Substance: FILGRASTIM
     Indication: SUPPORTIVE CARE
     Dosage: 300 UG, QD
     Route: 058
  6. ONDANSETRON [Concomitant]
     Active Substance: ONDANSETRON
     Dosage: UNK
     Route: 065
  7. DEXAMETHASONE. [Concomitant]
     Active Substance: DEXAMETHASONE
     Indication: SUPPORTIVE CARE
     Dosage: 20 MG, QD
     Route: 048
  8. DOXORUBICIN HCL [Suspect]
     Active Substance: DOXORUBICIN HYDROCHLORIDE
     Dosage: 106 MG, UNK
     Route: 042
  9. HYDROMORPHONE HYDROCHLORIDE. [Suspect]
     Active Substance: HYDROMORPHONE HYDROCHLORIDE
     Dosage: UNK
     Route: 042
  10. MORPHINE SULFATE. [Suspect]
     Active Substance: MORPHINE SULFATE
     Dosage: UNK (ONCE EVERY TEN MINUTES)
     Route: 042
     Dates: start: 2017
  11. GABAPENTIN. [Concomitant]
     Active Substance: GABAPENTIN
     Dosage: UNK
     Route: 065
  12. METOCLOPRAMIDE. [Concomitant]
     Active Substance: METOCLOPRAMIDE
     Dosage: 10.0 MG, UNK
     Route: 065
  13. DEXAMETHASONE. [Concomitant]
     Active Substance: DEXAMETHASONE
     Dosage: UNK
     Route: 065
  14. CEFTRIAXONE SODIUM. [Suspect]
     Active Substance: CEFTRIAXONE SODIUM
     Dosage: 1 G, QD
     Route: 042
     Dates: start: 2017, end: 2017
  15. HYDROMORPHONE HYDROCHLORIDE. [Suspect]
     Active Substance: HYDROMORPHONE HYDROCHLORIDE
     Dosage: UNK
     Route: 042
     Dates: start: 2017, end: 2017
  16. METHYLPREDNISOLONE SODIUM SUCCINATE. [Suspect]
     Active Substance: METHYLPREDNISOLONE SODIUM SUCCINATE
     Dosage: 125 MG, 4X/DAY
     Route: 042
  17. PACLITAXEL. [Suspect]
     Active Substance: PACLITAXEL
     Indication: BREAST CANCER
     Dosage: 297 MG, Q2WEEKS (ONCE EVERY 14 DAYS) (1 EVERY 2 WEEK(S))
     Route: 042
     Dates: start: 2017, end: 2017
  18. PANTOPRAZOLE [Suspect]
     Active Substance: PANTOPRAZOLE
     Dosage: 8 MG, UNK
     Route: 042
  19. ENOXAPARIN [Suspect]
     Active Substance: ENOXAPARIN
     Dosage: 40 MG, QD
     Route: 058
  20. PROCYTOX [Suspect]
     Active Substance: CYCLOPHOSPHAMIDE
     Dosage: 1060 MG, 1X/DAY
     Route: 042
  21. METOCLOPRAMIDE. [Concomitant]
     Active Substance: METOCLOPRAMIDE
     Dosage: 10 MG, 4X/DAY (Q6HR)
     Route: 048
     Dates: start: 20161215
  22. AMIODARONE HCL [Suspect]
     Active Substance: AMIODARONE HYDROCHLORIDE
     Dosage: UNK
     Route: 065
     Dates: start: 2017, end: 2017
  23. AZITHROMYCIN ANHYDROUS. [Suspect]
     Active Substance: AZITHROMYCIN ANHYDROUS
     Dosage: 500 MG, QD
     Route: 042
     Dates: start: 2017, end: 2017
  24. FUROSEMIDE. [Suspect]
     Active Substance: FUROSEMIDE
     Indication: BREAST CANCER
     Dosage: 40 MG, QD
     Route: 048
     Dates: start: 2017, end: 2017
  25. DIGOXIN. [Suspect]
     Active Substance: DIGOXIN
     Dosage: 0.25 MG (ONE EVERY FOUR HOURS)
     Route: 042
     Dates: start: 2017, end: 2017
  26. CYCLOPHOSPHAMIDE. [Suspect]
     Active Substance: CYCLOPHOSPHAMIDE
     Indication: BREAST CANCER
     Dosage: 1060 MG, CYCLIC (1 EVERY 2 WEEK(S))
     Route: 042
  27. CYCLOPHOSPHAMIDE. [Suspect]
     Active Substance: CYCLOPHOSPHAMIDE
     Dosage: 1060 MG, CYCLIC (1 EVERY 2 WEEK(S))
     Route: 042
  28. CEFTRIAXONE SODIUM. [Suspect]
     Active Substance: CEFTRIAXONE SODIUM
     Dosage: 1 G, 1X/DAY
     Route: 042
  29. CEFTRIAXONE SODIUM. [Suspect]
     Active Substance: CEFTRIAXONE SODIUM
     Dosage: 1 G, EVERY 4 HRS
     Route: 042
  30. HYDROMORPHONE HYDROCHLORIDE. [Suspect]
     Active Substance: HYDROMORPHONE HYDROCHLORIDE
     Dosage: UNK
     Route: 042
  31. PANTOPRAZOLE [Suspect]
     Active Substance: PANTOPRAZOLE
     Dosage: 8 MG, ONCE EVERY HOUR
     Route: 042
     Dates: start: 2017
  32. FUROSEMIDE. [Suspect]
     Active Substance: FUROSEMIDE
     Dosage: 40 MG, QD
     Route: 048
  33. TRASTUZUMAB. [Suspect]
     Active Substance: TRASTUZUMAB
     Indication: BREAST CANCER
     Dosage: UNK
     Route: 065
  34. DIGOXIN. [Suspect]
     Active Substance: DIGOXIN
     Dosage: 0.25 MG, UNK
     Route: 042
  35. HYDRALAZINE [Suspect]
     Active Substance: HYDRALAZINE HYDROCHLORIDE
     Dosage: 10 MG, EVERY FOUR HOURS (6 EVERY 1 DAYS)
     Route: 042
     Dates: start: 2017
  36. CYCLOPHOSPHAMIDE. [Suspect]
     Active Substance: CYCLOPHOSPHAMIDE
     Dosage: 1060 MG, CYCLIC (1 EVERY 2 WEEK(S))
     Route: 042
  37. GABAPENTIN. [Concomitant]
     Active Substance: GABAPENTIN
     Dosage: 100 MG, TID
     Route: 048
  38. DOXORUBICIN HCL [Suspect]
     Active Substance: DOXORUBICIN HYDROCHLORIDE
     Dosage: 106 MG, Q2WEEKS (ONCE EVERY 14 DAYS) (1 EVERY 2 WEEK(S))
     Route: 042
     Dates: start: 2017, end: 2017
  39. METHYLPREDNISOLONE SODIUM SUCCINATE. [Suspect]
     Active Substance: METHYLPREDNISOLONE SODIUM SUCCINATE
     Dosage: 125 MG, 4X/DAY (EVERY 6 HOURS)
     Route: 042
     Dates: start: 2017, end: 2017
  40. PACLITAXEL. [Suspect]
     Active Substance: PACLITAXEL
     Dosage: 297 MG, UNK
     Route: 042
  41. DIGOXIN. [Suspect]
     Active Substance: DIGOXIN
     Dosage: 10 MG, UNK
     Route: 042
  42. PROCYTOX [Suspect]
     Active Substance: CYCLOPHOSPHAMIDE
     Dosage: 1060 MG, Q2WEEKS (ONCE EVERY 14 DAYS)
     Route: 042
  43. FILGRASTIM [Concomitant]
     Active Substance: FILGRASTIM
     Dosage: UNK
     Route: 065
  44. APREPITANT. [Concomitant]
     Active Substance: APREPITANT
     Indication: SUPPORTIVE CARE
     Dosage: 125 MG, UNK
     Route: 048
  45. DIMENHYDRINATE. [Suspect]
     Active Substance: DIMENHYDRINATE
     Dosage: 50 MG, EVERY 4 HRS
     Route: 042
     Dates: start: 2017, end: 2017
  46. DIGOXIN. [Suspect]
     Active Substance: DIGOXIN
     Dosage: 10 MG, (1 EVERY 1 HOUR (S))
     Route: 042
     Dates: start: 2017
  47. APREPITANT. [Concomitant]
     Active Substance: APREPITANT
     Dosage: UNK
     Route: 065
  48. AMIODARONE HCL [Suspect]
     Active Substance: AMIODARONE HYDROCHLORIDE
     Dosage: UNK
     Route: 065
  49. AZITHROMYCIN ANHYDROUS. [Suspect]
     Active Substance: AZITHROMYCIN ANHYDROUS
     Dosage: 500 MG, 1X/DAY
     Route: 042
  50. MORPHINE SULFATE. [Suspect]
     Active Substance: MORPHINE SULFATE
     Dosage: UNK
     Route: 042
  51. DILTIAZEM CD [Suspect]
     Active Substance: DILTIAZEM
     Dosage: 180 MG, UNK
     Route: 048
  52. ENOXAPARIN [Suspect]
     Active Substance: ENOXAPARIN
     Dosage: 40 MG, QD
     Route: 058
     Dates: start: 2017, end: 2017
  53. METOPROLOL. [Suspect]
     Active Substance: METOPROLOL
     Dosage: 2.5 MG, 4X/DAY (EVERY 6 HOURS)
     Route: 042
     Dates: start: 2017
  54. PROCYTOX [Suspect]
     Active Substance: CYCLOPHOSPHAMIDE
     Dosage: 1060 MG, Q2WEEKS (ONCE EVERY 14 DAYS)
     Route: 042
     Dates: start: 2017, end: 2017
  55. ONDANSETRON [Concomitant]
     Active Substance: ONDANSETRON
     Indication: SUPPORTIVE CARE
     Dosage: 8 G, BID
     Route: 048

REACTIONS (3)
  - Alveolitis [Fatal]
  - Hypoxia [Fatal]
  - Atrial fibrillation [Fatal]

NARRATIVE: CASE EVENT DATE: 2017
